FAERS Safety Report 9044895 (Version 1)
Quarter: 2013Q1

REPORT INFORMATION
  Report Type: Report from Study
  Country: JP (occurrence: JP)
  Receive Date: 20130130
  Receipt Date: 20130130
  Transmission Date: 20140127
  Serious: Yes (Other)
  Sender: FDA-Public Use
  Company Number: JP-GLAXOSMITHKLINE-B0859879A

PATIENT
  Age: 78 None
  Sex: Female
  Weight: 40 kg

DRUGS (3)
  1. TYKERB [Suspect]
     Indication: BREAST CANCER
     Route: 048
     Dates: start: 20090804, end: 20100629
  2. XELODA [Concomitant]
     Route: 048
     Dates: start: 20090804, end: 20100629
  3. ZOMETA [Concomitant]
     Indication: METASTASES TO BONE
     Route: 042

REACTIONS (2)
  - Pancytopenia [Recovering/Resolving]
  - Hypoaesthesia [Not Recovered/Not Resolved]
